FAERS Safety Report 4534167-1 (Version None)
Quarter: 2004Q4

REPORT INFORMATION
  Report Type: 
  Country: None (occurrence: None)
  Receive Date: 20041214
  Receipt Date: 20040824
  Transmission Date: 20050328
  Serious: No
  Sender: FDA-Public Use
  Company Number: USA040772520

PATIENT
  Age: 52 Year
  Sex: Male

DRUGS (5)
  1. CIALIS [Suspect]
     Indication: ERECTILE DYSFUNCTION
     Dosage: 20MG
     Dates: start: 20030101
  2. YOHIMBINE [Concomitant]
  3. ARGININE [Concomitant]
  4. VITAMIN B COMPLEX CAP [Concomitant]
  5. BESTER COMPLEX [Concomitant]

REACTIONS (1)
  - THERAPEUTIC RESPONSE DECREASED [None]
